FAERS Safety Report 10484123 (Version 1)
Quarter: 2014Q3

REPORT INFORMATION
  Report Type: Spontaneous
  Country: US (occurrence: None)
  Receive Date: 20140929
  Receipt Date: 20140929
  Transmission Date: 20150326
  Serious: Yes (Life-Threatening, Hospitalization)
  Sender: FDA-Public Use
  Company Number: None

PATIENT
  Age: 52 Year
  Sex: Male
  Weight: 117.94 kg

DRUGS (2)
  1. QUININE [Suspect]
     Active Substance: QUININE
     Indication: MUSCLE SPASMS
     Dosage: 1 PILL
     Route: 048
     Dates: start: 20040901, end: 20080901
  2. QUININE [Suspect]
     Active Substance: QUININE
     Indication: RESTLESS LEGS SYNDROME
     Dosage: 1 PILL
     Route: 048
     Dates: start: 20040901, end: 20080901

REACTIONS (4)
  - Immune thrombocytopenic purpura [None]
  - Blood disorder [None]
  - Malaise [None]
  - Neoplasm malignant [None]

NARRATIVE: CASE EVENT DATE: 20081001
